FAERS Safety Report 7394218-6 (Version None)
Quarter: 2011Q2

REPORT INFORMATION
  Report Type: 
  Country: None (occurrence: None)
  Receive Date: 20110405
  Receipt Date: 20110404
  Transmission Date: 20111010
  Serious: Yes (Other)
  Sender: FDA-Public Use
  Company Number: US-TYCO HEALTHCARE/MALLINCKRODT-T201100620

PATIENT
  Age: 72 Year
  Sex: Female

DRUGS (1)
  1. OPTIRAY 350 [Suspect]
     Indication: ANGIOGRAM
     Dosage: LESS THAN 50 ML
     Route: 042
     Dates: start: 20110320, end: 20110320

REACTIONS (3)
  - DRUG ADMINISTRATION ERROR [None]
  - COMPARTMENT SYNDROME [None]
  - INJECTION SITE EXTRAVASATION [None]
